FAERS Safety Report 16830055 (Version 2)
Quarter: 2019Q4

REPORT INFORMATION
  Report Type: Report from Study
  Country: US (occurrence: US)
  Receive Date: 20190919
  Receipt Date: 20191024
  Transmission Date: 20200122
  Serious: Yes (Other)
  Sender: FDA-Public Use
  Company Number: US-BEH-2019106967

PATIENT
  Age: 34 Year
  Sex: Female
  Weight: 99.32 kg

DRUGS (6)
  1. ALLEGRA [Concomitant]
     Active Substance: FEXOFENADINE HYDROCHLORIDE
     Indication: INJECTION SITE ERYTHEMA
  2. ALLEGRA [Concomitant]
     Active Substance: FEXOFENADINE HYDROCHLORIDE
     Indication: CIRCUMORAL OEDEMA
     Dosage: 1 DOSAGE FORM
     Route: 065
     Dates: start: 201909, end: 20190910
  3. ALLEGRA [Concomitant]
     Active Substance: FEXOFENADINE HYDROCHLORIDE
     Indication: INJECTION SITE INDURATION
  4. HAEGARDA [Suspect]
     Active Substance: HUMAN C1-ESTERASE INHIBITOR
     Indication: HEREDITARY ANGIOEDEMA
     Dosage: 6000 INTERNATIONAL UNIT, BIW (Q 3-4 DAYS)
     Route: 058
     Dates: start: 20190909
  5. HAEGARDA [Suspect]
     Active Substance: HUMAN C1-ESTERASE INHIBITOR
     Indication: PROPHYLAXIS
     Dosage: 6000 INTERNATIONAL UNIT, BIW (Q 3-4 DAYS)
     Route: 058
     Dates: start: 20190830
  6. ALLEGRA [Concomitant]
     Active Substance: FEXOFENADINE HYDROCHLORIDE
     Indication: ABDOMINAL DISTENSION

REACTIONS (5)
  - Urticaria [Recovered/Resolved]
  - Injection site induration [Recovered/Resolved]
  - Injection site erythema [Unknown]
  - Abdominal distension [Recovered/Resolved]
  - Hereditary angioedema [Recovered/Resolved]

NARRATIVE: CASE EVENT DATE: 20190909
